FAERS Safety Report 10368998 (Version 2)
Quarter: 2014Q4

REPORT INFORMATION
  Report Type: Spontaneous
  Country: US (occurrence: US)
  Receive Date: 20140807
  Receipt Date: 20141113
  Transmission Date: 20150528
  Serious: No
  Sender: FDA-Public Use
  Company Number: US-ASTRAZENECA-2014SE56937

PATIENT
  Age: 44 Year
  Sex: Female
  Weight: 63.5 kg

DRUGS (6)
  1. NEXIUM 24HR [Suspect]
     Active Substance: ESOMEPRAZOLE MAGNESIUM
     Indication: DYSPEPSIA
     Dosage: UNKNOWN, ONCE A DAY
     Route: 048
     Dates: start: 201407
  2. DICLOFENAC [Concomitant]
     Active Substance: DICLOFENAC
  3. NAPROXEN. [Concomitant]
     Active Substance: NAPROXEN
  4. NEXIUM 24HR [Suspect]
     Active Substance: ESOMEPRAZOLE MAGNESIUM
     Indication: ABDOMINAL DISCOMFORT
     Dosage: UNKNOWN, ONCE A DAY
     Route: 048
     Dates: start: 201407
  5. NEXIUM 24HR [Suspect]
     Active Substance: ESOMEPRAZOLE MAGNESIUM
     Indication: DYSPEPSIA
     Dosage: 2 TABLET, ONCE A DAY
     Route: 048
     Dates: start: 20140730
  6. NEXIUM 24HR [Suspect]
     Active Substance: ESOMEPRAZOLE MAGNESIUM
     Indication: ABDOMINAL DISCOMFORT
     Dosage: 2 TABLET, ONCE A DAY
     Route: 048
     Dates: start: 20140730

REACTIONS (3)
  - Intentional product misuse [Unknown]
  - Nausea [Not Recovered/Not Resolved]
  - Drug ineffective [Not Recovered/Not Resolved]

NARRATIVE: CASE EVENT DATE: 201407
